FAERS Safety Report 21750015 (Version 1)
Quarter: 2022Q4

REPORT INFORMATION
  Report Type: Report from Study
  Country: US (occurrence: US)
  Receive Date: 20221219
  Receipt Date: 20221219
  Transmission Date: 20230112
  Serious: No
  Sender: FDA-Public Use
  Company Number: US-ABBVIE-4194671

PATIENT
  Age: 52 Year
  Weight: 92.986 kg

DRUGS (2)
  1. HUMIRA [Suspect]
     Active Substance: ADALIMUMAB
     Indication: Ankylosing spondylitis
     Dosage: THIRD INJECTION
     Route: 058
     Dates: start: 20221028, end: 20221028
  2. HUMIRA [Suspect]
     Active Substance: ADALIMUMAB
     Dosage: SECOND INJECTION
     Route: 058
     Dates: start: 20221014, end: 20221014

REACTIONS (2)
  - Injection site erythema [Recovered/Resolved]
  - Injection site pruritus [Recovered/Resolved]

NARRATIVE: CASE EVENT DATE: 20221014
